FAERS Safety Report 7484102-1 (Version None)
Quarter: 2011Q2

REPORT INFORMATION
  Report Type: 
  Country: None (occurrence: None)
  Receive Date: 20110517
  Receipt Date: 20090822
  Transmission Date: 20111010
  Serious: Yes (Hospitalization, Other)
  Sender: FDA-Public Use
  Company Number: US-BAYER-200930653NA

PATIENT
  Age: 72 Year
  Sex: Female
  Weight: 111 kg

DRUGS (25)
  1. TRASYLOL [Suspect]
     Indication: AORTIC VALVE REPLACEMENT
     Dosage: 200CC
     Route: 042
     Dates: start: 20060928, end: 20060928
  2. BENADRYL [Concomitant]
     Dosage: UNK
     Dates: start: 20060928
  3. LIDOCAINE [Concomitant]
     Dosage: UNK
     Route: 042
     Dates: start: 20060928
  4. TRASYLOL [Suspect]
     Indication: ATRIAL SEPTAL DEFECT
  5. NOREPINEPHRINE BITARTRATE [Concomitant]
     Dosage: UNK
     Route: 042
     Dates: start: 20060928
  6. PROTAMINE SULFATE [Concomitant]
     Dosage: UNK
     Dates: start: 20060928
  7. NPH INSULIN [Concomitant]
     Dosage: 58 U, QD
     Route: 058
  8. LOVENOX [Concomitant]
     Route: 058
  9. FENTANYL [Concomitant]
     Dosage: UNK
     Route: 042
     Dates: start: 20060928
  10. ETOMIDATE [Concomitant]
     Dosage: UNK
     Route: 042
     Dates: start: 20060928
  11. INSULIN [Concomitant]
     Dosage: UNK
     Route: 042
     Dates: start: 20060928
  12. HEPARIN [Concomitant]
     Dosage: UNK
     Route: 042
     Dates: start: 20060928
  13. IRON SULFATETHIAMIN COMPOUND TAB [Concomitant]
     Route: 048
  14. POTASSIUM CHLORIDE [Concomitant]
     Dosage: 10 MILLIEQUIVALENT
     Route: 048
  15. VERSED [Concomitant]
     Dosage: UNK
     Route: 042
     Dates: start: 20060928
  16. DOPAMINE HCL [Concomitant]
     Dosage: UNK
     Dates: start: 20060928
  17. COUMADIN [Concomitant]
     Route: 048
  18. TOPROL-XL [Concomitant]
     Dosage: 250 MG, UNK
     Route: 048
  19. VECURONIUM BROMIDE [Concomitant]
     Dosage: UNK
     Route: 042
     Dates: start: 20060928
  20. MANNITOL [Concomitant]
     Dosage: UNK
     Route: 042
     Dates: start: 20060928
  21. MIDAZOLAM HCL [Concomitant]
     Dosage: UNK
     Route: 042
     Dates: start: 20060928
  22. TRASYLOL [Suspect]
     Indication: TRICUSPID VALVE REPAIR
     Dosage: 50CC/HOUR
     Route: 042
     Dates: start: 20060928, end: 20060928
  23. LIPITOR [Concomitant]
     Dosage: 10 MG, UNK
     Route: 048
  24. HYDROCHLOROTHIAZIDE [Concomitant]
     Dosage: 25 MG, UNK
     Route: 048
  25. ISOFLURANE [Concomitant]
     Dosage: UNK
     Dates: start: 20060928

REACTIONS (5)
  - RENAL FAILURE ACUTE [None]
  - RENAL FAILURE [None]
  - UNEVALUABLE EVENT [None]
  - PAIN [None]
  - INJURY [None]
